FAERS Safety Report 25833838 (Version 1)
Quarter: 2025Q3

REPORT INFORMATION
  Report Type: Spontaneous
  Country: US (occurrence: US)
  Receive Date: 20250923
  Receipt Date: 20250923
  Transmission Date: 20251021
  Serious: No
  Sender: ABBVIE
  Company Number: US-ABBVIE-6464360

PATIENT
  Sex: Female

DRUGS (1)
  1. LINZESS [Suspect]
     Active Substance: LINACLOTIDE
     Indication: Defaecation disorder
     Route: 048

REACTIONS (2)
  - Drug effect less than expected [Not Recovered/Not Resolved]
  - Product physical issue [Not Recovered/Not Resolved]
